FAERS Safety Report 5988615-0 (Version None)
Quarter: 2008Q4

REPORT INFORMATION
  Report Type: 
  Country: None (occurrence: None)
  Receive Date: 20081204
  Receipt Date: 20081113
  Transmission Date: 20090506
  Serious: Yes (Hospitalization)
  Sender: FDA-Public Use
  Company Number: 014037

PATIENT
  Age: 48 Year
  Sex: Female
  Weight: 75 kg

DRUGS (7)
  1. PRIALT [Suspect]
     Indication: PAIN
     Dosage: SEE IMAGE
     Route: 037
     Dates: start: 20080516, end: 20080520
  2. PRIALT [Suspect]
     Indication: PAIN
     Dosage: SEE IMAGE
     Route: 037
     Dates: start: 20080520, end: 20080610
  3. PRIALT [Suspect]
     Indication: PAIN
     Dosage: SEE IMAGE
     Route: 037
     Dates: start: 20080610, end: 20080617
  4. PRIALT [Suspect]
     Indication: PAIN
     Dosage: SEE IMAGE
     Route: 037
     Dates: start: 20080624, end: 20080701
  5. PRIALT [Suspect]
     Indication: PAIN
     Dosage: SEE IMAGE
     Route: 037
     Dates: start: 20080701, end: 20080708
  6. PRIALT [Suspect]
     Indication: PAIN
     Dosage: SEE IMAGE
     Route: 037
     Dates: start: 20080708, end: 20081023
  7. MORPHINE [Concomitant]

REACTIONS (3)
  - PNEUMONIA [None]
  - PULMONARY EMBOLISM [None]
  - SINUS TACHYCARDIA [None]
